FAERS Safety Report 20870017 (Version 1)
Quarter: 2022Q2

REPORT INFORMATION
  Report Type: Spontaneous
  Country: US (occurrence: US)
  Receive Date: 20220525
  Receipt Date: 20220525
  Transmission Date: 20220721
  Serious: No
  Sender: FDA-Public Use
  Company Number: US-NOVARTISTESTPH-NVSC2022US119700

PATIENT
  Sex: Male

DRUGS (1)
  1. LEQVIO [Suspect]
     Active Substance: INCLISIRAN SODIUM
     Indication: Low density lipoprotein increased
     Dosage: UNK UNK, OTHER (284 MG/ 1.5 ML) (OTHER FREQUENCY: INITIAL DOSE)
     Route: 058
     Dates: start: 20220523, end: 20220523

REACTIONS (1)
  - Rash [Unknown]
